FAERS Safety Report 8819787 (Version 2)
Quarter: 2015Q1

REPORT INFORMATION
  Report Type: Report from Study
  Country: US (occurrence: US)
  Receive Date: 20121001
  Receipt Date: 20150202
  Transmission Date: 20150721
  Serious: Yes (Hospitalization, Other)
  Sender: FDA-Public Use
  Company Number: US-ROCHE-1130039

PATIENT
  Age: 86 Year
  Sex: Female

DRUGS (15)
  1. CEPHALEXIN. [Concomitant]
     Active Substance: CEPHALEXIN
     Route: 065
  2. ATARAX [Concomitant]
     Active Substance: HYDROXYZINE\HYDROXYZINE HYDROCHLORIDE
     Indication: SERUM SICKNESS
  3. DARVOCET [Concomitant]
     Active Substance: ACETAMINOPHEN\PROPOXYPHENE HYDROCHLORIDE
     Indication: PAIN
  4. HERCEPTIN [Suspect]
     Active Substance: TRASTUZUMAB
     Dosage: MAINTENANCE DOSE
     Route: 042
  5. TAGAMET [Concomitant]
     Active Substance: CIMETIDINE
     Route: 042
  6. LOPRESSOR [Concomitant]
     Active Substance: METOPROLOL TARTRATE
     Route: 065
  7. FOLTX [Concomitant]
     Active Substance: CYANOCOBALAMIN CO-57\FOLIC ACID\PYRIDOXINE HYDROCHLORIDE
  8. PREDNISONE. [Concomitant]
     Active Substance: PREDNISONE
  9. BENADRYL [Concomitant]
     Active Substance: DIPHENHYDRAMINE HYDROCHLORIDE
     Route: 042
  10. SILVADENE [Concomitant]
     Active Substance: SILVER SULFADIAZINE
  11. HERCEPTIN [Suspect]
     Active Substance: TRASTUZUMAB
     Indication: HER-2 POSITIVE BREAST CANCER
     Dosage: LOADING DOSE 4 MG/KG AND MAINTANENCE DOSE 2 MG/KG
     Route: 042
     Dates: start: 19990810
  12. SULAR [Concomitant]
     Active Substance: NISOLDIPINE
     Route: 065
  13. DECADRON [Concomitant]
     Active Substance: DEXAMETHASONE
     Route: 042
  14. TAXOL [Concomitant]
     Active Substance: PACLITAXEL
     Route: 065
     Dates: start: 19990824
  15. ZESTRIL [Concomitant]
     Active Substance: LISINOPRIL

REACTIONS (20)
  - Pruritus [Unknown]
  - Swelling face [Recovering/Resolving]
  - Erythema [Unknown]
  - Back pain [Recovered/Resolved]
  - Thrombocytopenia [Unknown]
  - Hypertension [Unknown]
  - Osteoarthritis [Unknown]
  - Erythema [Recovered/Resolved]
  - Acute kidney injury [Unknown]
  - Bone swelling [Unknown]
  - Dermatitis [Unknown]
  - Neoplasm [Unknown]
  - Oral herpes [Unknown]
  - Hypoaesthesia [Unknown]
  - Dyspnoea [Unknown]
  - Arthralgia [Unknown]
  - Neutropenia [Unknown]
  - Supraventricular tachycardia [Unknown]
  - Urticaria [Recovering/Resolving]
  - Decreased appetite [Unknown]

NARRATIVE: CASE EVENT DATE: 199909
